FAERS Safety Report 7194391-9 (Version None)
Quarter: 2010Q4

REPORT INFORMATION
  Report Type: 
  Country: None (occurrence: None)
  Receive Date: 20101223
  Receipt Date: 20101220
  Transmission Date: 20110411
  Serious: Yes (Hospitalization, Other)
  Sender: FDA-Public Use
  Company Number: US-ELI_LILLY_AND_COMPANY-US201012004834

PATIENT
  Sex: Male
  Weight: 121.54 kg

DRUGS (12)
  1. BYETTA [Suspect]
     Indication: TYPE 2 DIABETES MELLITUS
     Dosage: 5 UG, 2/D
     Route: 058
  2. BYETTA [Suspect]
     Dosage: 10 UG, 2/D
     Route: 058
  3. CYMBALTA [Concomitant]
     Indication: DIABETIC NEUROPATHY
     Dosage: UNK, DAILY (1/D)
     Route: 048
  4. PRANDIN [Concomitant]
     Indication: TYPE 2 DIABETES MELLITUS
     Dosage: 2 MG, 3/D
     Route: 048
  5. LYRICA [Concomitant]
     Indication: DIABETIC NEUROPATHY
     Dosage: 150 MG, 3/D
     Route: 048
  6. ISOSORBIDE DINITRATE [Concomitant]
     Indication: CARDIAC DISORDER
     Dosage: UNK, DAILY (1/D)
     Route: 048
  7. LASIX [Concomitant]
     Indication: POLYURIA
     Dosage: 40 MG, DAILY (1/D)
     Route: 048
  8. THEO-DUR [Concomitant]
     Indication: EMPHYSEMA
     Dosage: UNK, 2/D
     Route: 048
  9. SPIRONOLACTONE [Concomitant]
     Indication: POLYURIA
     Dosage: UNK, DAILY (1/D)
     Route: 048
  10. COLCHICINE [Concomitant]
     Indication: GOUT
     Dosage: UNK, DAILY (1/D)
     Route: 048
  11. ALBUTEROL SULFATE [Concomitant]
     Indication: EMPHYSEMA
     Dosage: UNK, DAILY (1/D)
     Route: 048
  12. LISINOPRIL [Concomitant]
     Indication: PROPHYLAXIS
     Dosage: UNK, DAILY (1/D)
     Route: 048

REACTIONS (6)
  - CARDIAC FAILURE CONGESTIVE [None]
  - CHRONIC OBSTRUCTIVE PULMONARY DISEASE [None]
  - DYSPNOEA [None]
  - EMPHYSEMA [None]
  - EYE DISORDER [None]
  - PNEUMONIA [None]
